FAERS Safety Report 7669836-8 (Version None)
Quarter: 2011Q3

REPORT INFORMATION
  Report Type: 
  Country: None (occurrence: None)
  Receive Date: 20110803
  Receipt Date: 20110726
  Transmission Date: 20111222
  Serious: Yes (Other)
  Sender: FDA-Public Use
  Company Number: JPI-P-016091

PATIENT
  Age: 34 Year
  Sex: Male
  Weight: 86.1834 kg

DRUGS (4)
  1. ESCITALOPRAM OXALATE [Concomitant]
  2. XYREM [Suspect]
     Indication: SLEEP DISORDER
     Dosage: 4 GM (2 GM, 2 IN 1 D), ORAL; 5 GM (5 GM, 1 IN 1 D), ORAL
     Route: 048
     Dates: start: 20090605
  3. XYREM [Suspect]
     Indication: SLEEP DISORDER
     Dosage: 4 GM (2 GM, 2 IN 1 D), ORAL; 5 GM (5 GM, 1 IN 1 D), ORAL
     Route: 048
     Dates: end: 20110101
  4. CLONAZEPAM [Concomitant]

REACTIONS (6)
  - POST-TRAUMATIC NECK SYNDROME [None]
  - RIB FRACTURE [None]
  - PAIN [None]
  - ROAD TRAFFIC ACCIDENT [None]
  - VOMITING [None]
  - SKELETAL INJURY [None]
